FAERS Safety Report 7882419-X (Version None)
Quarter: 2011Q4

REPORT INFORMATION
  Report Type: 
  Country: None (occurrence: None)
  Receive Date: 20111101
  Receipt Date: 20110614
  Transmission Date: 20120403
  Serious: No
  Sender: FDA-Public Use
  Company Number: US-AMGEN-USASP2011030599

PATIENT
  Age: 37 Year
  Sex: Male
  Weight: 41 kg

DRUGS (3)
  1. HYDROXYZINE [Concomitant]
     Dosage: 25 MG, UNK
  2. MOTRIN [Concomitant]
     Dosage: 400 MG, UNK
  3. ENBREL [Suspect]
     Indication: PRODUCT USED FOR UNKNOWN INDICATION
     Dosage: 50 MG, 2 TIMES/WK
     Route: 058

REACTIONS (1)
  - SINUS DISORDER [None]
